FAERS Safety Report 7900711 (Version 2)
Quarter: 2014Q1

REPORT INFORMATION
  Report Type: Report from Study
  Country: US (occurrence: US)
  Receive Date: 20110415
  Receipt Date: 20140327
  Transmission Date: 20141002
  Serious: Yes (Death, Hospitalization, Other)
  Sender: FDA-Public Use
  Company Number: US-ALEXION-A201100487

PATIENT
  Age: 64 Year
  Sex: Female

DRUGS (5)
  1. SOLIRIS 300MG [Suspect]
     Indication: PAROXYSMAL NOCTURNAL HAEMOGLOBINURIA
     Dosage: 600 MG, QW
     Route: 042
     Dates: start: 20110105, end: 20110126
  2. SOLIRIS 300MG [Suspect]
     Dosage: 900 MG, Q2W
     Route: 042
     Dates: start: 20110209, end: 20110309
  3. SOLIRIS [Suspect]
     Indication: PAROXYSMAL NOCTURNAL HAEMOGLOBINURIA
     Dosage: 600 MG, QW
     Route: 042
     Dates: start: 20110105, end: 20110126
  4. SOLIRIS [Suspect]
     Dosage: 900 UNK, Q2W
     Route: 042
     Dates: start: 20110209, end: 20110309
  5. KEPPRA [Concomitant]
     Dosage: UNK
     Dates: end: 20110406

REACTIONS (7)
  - Aplastic anaemia [Fatal]
  - Haemorrhage intracranial [Fatal]
  - Fall [Unknown]
  - Platelet count decreased [Fatal]
  - Dizziness [Unknown]
  - Sciatica [Unknown]
  - Vomiting [Unknown]
